FAERS Safety Report 6946527-X (Version None)
Quarter: 2010Q3

REPORT INFORMATION
  Report Type: 
  Country: None (occurrence: None)
  Receive Date: 20100827
  Receipt Date: 20090805
  Transmission Date: 20110219
  Serious: No
  Sender: FDA-Public Use
  Company Number: US-ABBOTT-09P-163-0589927-00

PATIENT
  Sex: Female
  Weight: 74.002 kg

DRUGS (8)
  1. NIASPAN [Suspect]
     Indication: BLOOD CHOLESTEROL INCREASED
     Dates: start: 20090730
  2. ASPIRIN [Concomitant]
     Indication: PROPHYLAXIS
     Dates: start: 20090730
  3. ASPIRIN [Concomitant]
     Indication: FLUSHING
  4. ZETIA [Concomitant]
     Indication: BLOOD CHOLESTEROL INCREASED
  5. DIAZEPAM [Concomitant]
     Indication: INSOMNIA
  6. LEVOXYL [Concomitant]
     Indication: HYPOTHYROIDISM
  7. MICARDIS [Concomitant]
     Indication: HYPERTENSION
  8. LEXAPRO [Concomitant]
     Indication: STRESS

REACTIONS (3)
  - FEELING HOT [None]
  - HOT FLUSH [None]
  - PARAESTHESIA [None]
